FAERS Safety Report 4773901-2 (Version None)
Quarter: 2005Q3

REPORT INFORMATION
  Report Type: 
  Country: None (occurrence: None)
  Receive Date: 20050920
  Receipt Date: 20050906
  Transmission Date: 20060218
  Serious: Yes (Hospitalization)
  Sender: FDA-Public Use
  Company Number: US-AMGEN-US149679

PATIENT
  Age: 60 Year
  Sex: Female
  Weight: 72.6 kg

DRUGS (11)
  1. PROCRIT [Suspect]
     Indication: ANAEMIA
     Route: 058
  2. TYLENOL [Concomitant]
  3. AGRYLIN [Concomitant]
  4. ASPIRIN [Concomitant]
  5. MOBIC [Concomitant]
  6. PROTONIX [Concomitant]
  7. LASIX [Concomitant]
  8. DILTIAZEM [Concomitant]
  9. AMBIEN [Concomitant]
  10. CELEXA [Concomitant]
  11. DIOVAN [Concomitant]

REACTIONS (3)
  - CONDITION AGGRAVATED [None]
  - DIVERTICULITIS [None]
  - GASTROINTESTINAL HAEMORRHAGE [None]
